FAERS Safety Report 21181072 (Version 1)
Quarter: 2022Q3

REPORT INFORMATION
  Report Type: Spontaneous
  Country: US (occurrence: US)
  Receive Date: 20220806
  Receipt Date: 20220806
  Transmission Date: 20221026
  Serious: No
  Sender: FDA-Public Use
  Company Number: US-SA-SAC20220727000222

PATIENT
  Age: 65 Year
  Sex: Female
  Weight: 59.42 kg

DRUGS (1)
  1. DUPIXENT [Suspect]
     Active Substance: DUPILUMAB
     Indication: Pemphigoid
     Dosage: 300MG, QOW
     Route: 058
     Dates: start: 20220608

REACTIONS (6)
  - Eczema [Unknown]
  - Therapeutic response shortened [Unknown]
  - Injection site pain [Recovered/Resolved]
  - Product preparation error [Unknown]
  - Product communication issue [Unknown]
  - Product use in unapproved indication [Unknown]

NARRATIVE: CASE EVENT DATE: 20220101
